FAERS Safety Report 22200543 (Version 1)
Quarter: 2023Q2

REPORT INFORMATION
  Report Type: Spontaneous
  Country: IT (occurrence: IT)
  Receive Date: 20230412
  Receipt Date: 20230412
  Transmission Date: 20230722
  Serious: Yes (Death, Life-Threatening, Hospitalization)
  Sender: FDA-Public Use
  Company Number: None

PATIENT
  Age: 46 Year
  Sex: Female

DRUGS (7)
  1. CELLCEPT [Suspect]
     Active Substance: MYCOPHENOLATE MOFETIL
     Indication: Product used for unknown indication
     Route: 065
     Dates: start: 20041012
  2. PLAQUENIL [Suspect]
     Active Substance: HYDROXYCHLOROQUINE SULFATE
     Indication: Rheumatoid arthritis
     Dosage: 03/OCT/2004, LAST DOSE
     Route: 065
     Dates: start: 200406
  3. LAMIVUDINE [Suspect]
     Active Substance: LAMIVUDINE
     Indication: Product used for unknown indication
     Route: 065
     Dates: start: 20041012
  4. MEDROL [Suspect]
     Active Substance: METHYLPREDNISOLONE
     Indication: Rheumatoid arthritis
     Route: 065
     Dates: start: 20041012
  5. MEDROL [Suspect]
     Active Substance: METHYLPREDNISOLONE
     Route: 065
     Dates: start: 200406, end: 20041003
  6. CYCLOSPORINE [Suspect]
     Active Substance: CYCLOSPORINE
     Indication: Rheumatoid arthritis
     Route: 065
     Dates: start: 20041012
  7. CYCLOSPORINE [Suspect]
     Active Substance: CYCLOSPORINE
     Dosage: 50 MG, BID (TWICE A DAY)
     Route: 065
     Dates: start: 200406, end: 20041003

REACTIONS (33)
  - Pulmonary congestion [Fatal]
  - Multiple organ dysfunction syndrome [Fatal]
  - Disseminated intravascular coagulation [Fatal]
  - Respiratory failure [Fatal]
  - Renal haemorrhage [Fatal]
  - Gastrointestinal haemorrhage [Fatal]
  - Pleural effusion [Fatal]
  - Enterococcal infection [Fatal]
  - Renal failure [Fatal]
  - Haemofiltration [Fatal]
  - Septic shock [Fatal]
  - Mechanical ventilation [Fatal]
  - Haemodynamic instability [Fatal]
  - Pruritus [Unknown]
  - Anaemia [Unknown]
  - Hepatitis fulminant [Recovering/Resolving]
  - Haemolysis [Unknown]
  - Ascites [Unknown]
  - Pyrexia [Unknown]
  - Abdominal pain [Unknown]
  - Fatigue [Unknown]
  - Mental status changes [Unknown]
  - Blood bilirubin increased [Unknown]
  - Jaundice [Unknown]
  - Alanine aminotransferase increased [Recovering/Resolving]
  - Gamma-glutamyltransferase increased [Unknown]
  - Aspartate aminotransferase increased [Recovering/Resolving]
  - Decreased appetite [Unknown]
  - Prothrombin time prolonged [Unknown]
  - Liver transplant [Recovering/Resolving]
  - Post procedural haemorrhage [Unknown]
  - Chromaturia [Unknown]
  - Faeces pale [Unknown]

NARRATIVE: CASE EVENT DATE: 20041007
